FAERS Safety Report 7627878-2 (Version None)
Quarter: 2011Q3

REPORT INFORMATION
  Report Type: 
  Country: None (occurrence: None)
  Receive Date: 20110721
  Receipt Date: 20110706
  Transmission Date: 20111222
  Serious: No
  Sender: FDA-Public Use
  Company Number: US-MERCK-1105USA03443

PATIENT
  Age: 57 Year
  Sex: Female

DRUGS (1)
  1. ZETIA [Suspect]
     Indication: BLOOD CHOLESTEROL INCREASED
     Route: 048
     Dates: start: 20110223

REACTIONS (1)
  - BLOOD CHOLESTEROL INCREASED [None]
